FAERS Safety Report 4726978-4 (Version None)
Quarter: 2005Q3

REPORT INFORMATION
  Report Type: 
  Country: None (occurrence: None)
  Receive Date: 20050726
  Receipt Date: 20050726
  Transmission Date: 20060218
  Serious: No
  Sender: FDA-Public Use
  Company Number: None

PATIENT
  Age: 76 Year
  Sex: Female

DRUGS (1)
  1. NAPROXEN [Suspect]
     Dosage: 500MG BID ORAL
     Route: 048
     Dates: start: 20050716, end: 20050720

REACTIONS (4)
  - DYSPHAGIA [None]
  - DYSPNOEA [None]
  - SPEECH DISORDER [None]
  - SWOLLEN TONGUE [None]
